FAERS Safety Report 12413479 (Version 2)
Quarter: 2016Q2

REPORT INFORMATION
  Report Type: Report from Study
  Country: US (occurrence: US)
  Receive Date: 20160527
  Receipt Date: 20160617
  Transmission Date: 20160815
  Serious: Yes (Other)
  Sender: FDA-Public Use
  Company Number: US-KADMON PHARMACEUTICALS, LLC-KAD201602-000396

PATIENT
  Age: 48 Year
  Sex: Male
  Weight: 42.18 kg

DRUGS (6)
  1. RIBAVIRIN. [Suspect]
     Active Substance: RIBAVIRIN
     Indication: HEPATITIS C
     Dosage: TABLET
     Route: 048
     Dates: start: 20151202, end: 20160605
  2. VIEKIRA PAK [Suspect]
     Active Substance: DASABUVIR\OMBITASVIR\PARITAPREVIR\RITONAVIR
     Indication: HEPATITIS C
     Dosage: TABLET
     Route: 048
     Dates: start: 20151202, end: 20160605
  3. LISINOPRIL. [Concomitant]
     Active Substance: LISINOPRIL
  4. LACTULOSE. [Concomitant]
     Active Substance: LACTULOSE
  5. ALBUTEROL (SALBUTAMOL) [Concomitant]
     Active Substance: ALBUTEROL
  6. FLOMAX [Concomitant]
     Active Substance: TAMSULOSIN HYDROCHLORIDE

REACTIONS (15)
  - Jaundice [Unknown]
  - Pruritus [Unknown]
  - Blood bilirubin increased [Unknown]
  - White blood cell count decreased [Unknown]
  - Diarrhoea [Unknown]
  - Nausea [Unknown]
  - Red blood cell count decreased [Unknown]
  - Weight decreased [Recovered/Resolved]
  - Gilbert^s syndrome [Unknown]
  - Feeling cold [Unknown]
  - Urinary retention [Recovered/Resolved]
  - Vomiting [Unknown]
  - Irritability [Unknown]
  - Fatigue [Unknown]
  - Rash [Recovered/Resolved]

NARRATIVE: CASE EVENT DATE: 201512
